FAERS Safety Report 5308150-2 (Version None)
Quarter: 2007Q2

REPORT INFORMATION
  Report Type: 
  Country: None (occurrence: None)
  Receive Date: 20070426
  Receipt Date: 20070418
  Transmission Date: 20071010
  Serious: Yes (Hospitalization)
  Sender: FDA-Public Use
  Company Number: PHEH2007US05777

PATIENT
  Age: 74 Year
  Sex: Female

DRUGS (14)
  1. VOLTAREN [Suspect]
     Indication: PAIN
     Dates: start: 20060526, end: 20061204
  2. DABIGATRAN ETEXILATE VS PLACEBO [Suspect]
     Dates: start: 20060526, end: 20061207
  3. CLONIDINE [Concomitant]
  4. COTENSIN [Concomitant]
  5. HYDROCHLOROTHIAZIDE [Concomitant]
  6. LEVOTHYROXINE SODIUM [Concomitant]
  7. NEXIUM [Concomitant]
  8. LIPITOR [Concomitant]
  9. LYRICA [Concomitant]
  10. OXYCODONE HCL AND ACETAMINOPHEN [Concomitant]
  11. VITAMIN B-12 [Concomitant]
  12. VITAMIN CAP [Concomitant]
  13. ASCORBIC ACID [Concomitant]
  14. VITAMIN E [Concomitant]

REACTIONS (11)
  - ABSCESS DRAINAGE [None]
  - DURAL TEAR [None]
  - EXTRADURAL ABSCESS [None]
  - GASTROINTESTINAL HAEMORRHAGE [None]
  - INTERVERTEBRAL DISCITIS [None]
  - OSTEOMYELITIS [None]
  - PULMONARY HYPERTENSION [None]
  - SPINAL COLUMN STENOSIS [None]
  - SPINAL LAMINECTOMY [None]
  - SURGERY [None]
  - SURGICAL PROCEDURE REPEATED [None]
